FAERS Safety Report 16384563 (Version 1)
Quarter: 2019Q2

REPORT INFORMATION
  Report Type: Spontaneous
  Country: PT (occurrence: PT)
  Receive Date: 20190603
  Receipt Date: 20190603
  Transmission Date: 20190711
  Serious: Yes (Death, Other)
  Sender: FDA-Public Use
  Company Number: PT-INCYTE CORPORATION-2019IN005370

PATIENT

DRUGS (1)
  1. JAKAVI [Suspect]
     Active Substance: RUXOLITINIB
     Indication: PRIMARY MYELOFIBROSIS
     Dosage: UNK
     Route: 065
     Dates: start: 20170811

REACTIONS (4)
  - Death [Fatal]
  - Bone marrow reticulin fibrosis [Unknown]
  - Fungal infection [Unknown]
  - Cachexia [Unknown]

NARRATIVE: CASE EVENT DATE: 201809
